FAERS Safety Report 11029211 (Version 2)
Quarter: 2015Q2

REPORT INFORMATION
  Report Type: Report from Study
  Country: AU (occurrence: AU)
  Receive Date: 20150415
  Receipt Date: 20150429
  Transmission Date: 20150821
  Serious: Yes (Hospitalization, Disabling, Other)
  Sender: FDA-Public Use
  Company Number: PHHY2015AU036583

PATIENT
  Age: 73 Year
  Sex: Male
  Weight: 74 kg

DRUGS (8)
  1. ATORVASTATIN [Concomitant]
     Active Substance: ATORVASTATIN
     Indication: HYPERCHOLESTEROLAEMIA
     Route: 065
     Dates: start: 20141007, end: 20141105
  2. DOCUSATE SODIUM W/SENNOSIDE A+B [Concomitant]
     Active Substance: DOCUSATE SODIUM\SENNOSIDES A AND B
     Indication: CONSTIPATION
     Route: 065
  3. HYDROCHLOROTHIAZIDE. [Concomitant]
     Active Substance: HYDROCHLOROTHIAZIDE
     Indication: HYPERTENSION
     Route: 065
  4. ZOLEDRONATE [Suspect]
     Active Substance: ZOLEDRONIC ACID
     Indication: BONE DISORDER
     Dosage: 4 MG, EVERY 3 WEEKS
     Route: 042
     Dates: start: 20141022
  5. PARACETAMOL [Concomitant]
     Active Substance: ACETAMINOPHEN
     Indication: BONE PAIN
     Route: 065
  6. ESOMEPRAZOLE [Concomitant]
     Active Substance: ESOMEPRAZOLE
     Indication: REFLUX GASTRITIS
     Route: 065
  7. METOCLOPRAMIDE. [Concomitant]
     Active Substance: METOCLOPRAMIDE
     Indication: NAUSEA
     Route: 065
  8. MIDAZOLAM [Suspect]
     Active Substance: MIDAZOLAM\MIDAZOLAM HYDROCHLORIDE
     Indication: NON-SMALL CELL LUNG CANCER
     Dosage: 2 MG, ONCE ON DAY 7 AND ONCE ON CYCLE 1 DAY 15
     Route: 048
     Dates: start: 20140703, end: 20140723

REACTIONS (18)
  - Dermatomyositis [Recovering/Resolving]
  - Periorbital oedema [Unknown]
  - Peripheral swelling [Unknown]
  - Swelling [Not Recovered/Not Resolved]
  - Rash erythematous [Unknown]
  - Hypersensitivity [Unknown]
  - Skin oedema [Unknown]
  - Myopathy [Unknown]
  - Pyrexia [Unknown]
  - Rash [Recovered/Resolved]
  - Asthenia [Recovering/Resolving]
  - Lymphadenopathy [Unknown]
  - Malaise [Unknown]
  - Erythema [Not Recovered/Not Resolved]
  - Anaemia [Unknown]
  - Muscular weakness [Recovering/Resolving]
  - Myositis [Unknown]
  - Blood creatine phosphokinase increased [Recovering/Resolving]

NARRATIVE: CASE EVENT DATE: 20141025
